FAERS Safety Report 8776677 (Version 2)
Quarter: 2012Q4

REPORT INFORMATION
  Report Type: 
  Country: BR (occurrence: BR)
  Receive Date: 20120910
  Receipt Date: 20120910
  Transmission Date: 20130627
  Serious: Yes (Other)
  Sender: FDA-Public Use
  Company Number: PHHY2011BR59310

PATIENT
  Sex: Female
  Weight: 44 kg

DRUGS (8)
  1. DIOVAN HCT [Suspect]
     Indication: HYPERTENSION
     Dosage: 160 mg vals and 12.5 mg HCT, a day in the morning
     Route: 048
  2. DIOVAN HCT [Suspect]
     Dosage: 320 mg vals and 12.5 mg HCT, a day in the morning
     Route: 048
  3. DIOVAN HCT [Suspect]
     Dosage: 320 mg vals and 12.5 mg HCT, a day in the morning
     Route: 048
     Dates: start: 20120831
  4. DIOVAN [Suspect]
     Indication: HYPERTENSION
     Dosage: 1 DF, a day
     Route: 048
  5. CITALOPRAM [Concomitant]
     Indication: DEPRESSION
     Dosage: 1 DF, a day
     Route: 048
  6. RIVOTRIL [Concomitant]
     Indication: AGITATION
     Dosage: 0.5 DF, a day
     Route: 048
  7. RIVOTRIL [Concomitant]
     Indication: SLEEP DISORDER
     Dosage: 0.5 DF, BID (half a tablet in the morning and at night)
     Route: 048
  8. MODURETIC [Concomitant]
     Dosage: 0.5 DF (25mg amiloride hydrochloride/2.5mg HCT), a day
     Route: 048

REACTIONS (9)
  - Ovarian neoplasm [Recovered/Resolved]
  - Hypotension [Recovered/Resolved]
  - Blood pressure increased [Recovered/Resolved]
  - Headache [Recovered/Resolved]
  - Anaemia [Recovered/Resolved]
  - Secretion discharge [Recovering/Resolving]
  - Weight decreased [Recovering/Resolving]
  - Stress [Recovered/Resolved]
  - Cough [Recovering/Resolving]
